FAERS Safety Report 14299906 (Version 1)
Quarter: 2017Q4

REPORT INFORMATION
  Report Type: Spontaneous
  Country: GB (occurrence: GB)
  Receive Date: 20171219
  Receipt Date: 20171219
  Transmission Date: 20180321
  Serious: Yes (Disabling, Other)
  Sender: FDA-Public Use
  Company Number: GB-AUROBINDO-AUR-APL-2017-45862

PATIENT
  Age: 74 Year
  Sex: Male
  Weight: 57.6 kg

DRUGS (2)
  1. AMLODIPINE [Suspect]
     Active Substance: AMLODIPINE BESYLATE
     Indication: HYPERTENSION
     Route: 048
     Dates: start: 201708, end: 201708
  2. AMLODIPINE [Suspect]
     Active Substance: AMLODIPINE BESYLATE
     Dosage: 10 MG, UNK
     Route: 048
     Dates: start: 20170927, end: 20170929

REACTIONS (3)
  - Feeling abnormal [Recovered/Resolved]
  - Myalgia [Unknown]
  - Apathy [Unknown]

NARRATIVE: CASE EVENT DATE: 20170929
